FAERS Safety Report 7199270-9 (Version None)
Quarter: 2010Q4

REPORT INFORMATION
  Report Type: 
  Country: None (occurrence: None)
  Receive Date: 20101228
  Receipt Date: 20101220
  Transmission Date: 20110411
  Serious: Yes (Hospitalization, Other)
  Sender: FDA-Public Use
  Company Number: US-PFIZER INC-2010117314

PATIENT
  Sex: Female

DRUGS (2)
  1. CHANTIX [Suspect]
     Indication: SMOKING CESSATION THERAPY
     Dosage: STARTER PACK AND CONTINUOUS PACK
     Dates: start: 20081020, end: 20081030
  2. ACETYLSALICYLIC ACID [Concomitant]
     Indication: HAEMANGIOMA CONGENITAL
     Dosage: UNK
     Dates: start: 19840101, end: 20100101

REACTIONS (9)
  - BACK INJURY [None]
  - CONTUSION [None]
  - CONVERSION DISORDER [None]
  - DYSPNOEA [None]
  - FALL [None]
  - LOSS OF CONSCIOUSNESS [None]
  - MENTAL STATUS CHANGES [None]
  - TRAUMATIC BRAIN INJURY [None]
  - VOMITING [None]
